FAERS Safety Report 25027740 (Version 1)
Quarter: 2025Q1

REPORT INFORMATION
  Report Type: Spontaneous
  Country: US (occurrence: US)
  Receive Date: 20250301
  Receipt Date: 20250301
  Transmission Date: 20250409
  Serious: No
  Sender: SANOFI AVENTIS
  Company Number: US-SA-2025SA060480

PATIENT
  Age: 13 Year
  Sex: Female
  Weight: 75 kg

DRUGS (7)
  1. DUPIXENT [Suspect]
     Active Substance: DUPILUMAB
     Indication: Dermatitis atopic
     Dosage: 300 MG, QOW
     Route: 058
  2. DUPIXENT [Suspect]
     Active Substance: DUPILUMAB
     Dosage: 300 MG, QOW
     Route: 058
     Dates: start: 20250217
  3. OPZELURA [Concomitant]
     Active Substance: RUXOLITINIB PHOSPHATE
  4. ELIDEL [Concomitant]
     Active Substance: PIMECROLIMUS
  5. EUCRISA [Concomitant]
     Active Substance: CRISABOROLE
  6. TRIAMCINOLONE ACETONIDE [Concomitant]
     Active Substance: TRIAMCINOLONE ACETONIDE
  7. AZELAIC ACID [Concomitant]
     Active Substance: AZELAIC ACID

REACTIONS (1)
  - Respiratory tract congestion [Recovered/Resolved]
